FAERS Safety Report 5990855-1 (Version None)
Quarter: 2008Q4

REPORT INFORMATION
  Report Type: 
  Country: None (occurrence: None)
  Receive Date: 20081211
  Receipt Date: 20081128
  Transmission Date: 20090506
  Serious: Yes (Hospitalization)
  Sender: FDA-Public Use
  Company Number: BR-PFIZER INC-2008045971

PATIENT

DRUGS (3)
  1. VIAGRA [Suspect]
     Indication: ERECTILE DYSFUNCTION
     Dosage: 50 MG, AS NEEDED
     Route: 048
     Dates: start: 20070825
  2. EUTHYROX [Concomitant]
     Indication: THYROID DISORDER
     Route: 065
     Dates: start: 20050101
  3. SIMVASTATIN [Concomitant]
     Route: 065
     Dates: start: 20050101

REACTIONS (1)
  - PROSTATIC OPERATION [None]
